FAERS Safety Report 24309039 (Version 1)
Quarter: 2024Q3

REPORT INFORMATION
  Report Type: Spontaneous
  Country: US (occurrence: US)
  Receive Date: 20240911
  Receipt Date: 20240911
  Transmission Date: 20241016
  Serious: Yes (Life-Threatening, Other)
  Sender: GUERBET
  Company Number: US-GUERBET / LLC-US-20240143

PATIENT
  Age: 38 Year
  Sex: Female

DRUGS (4)
  1. LIPIODOL [Suspect]
     Active Substance: ETHIODIZED OIL
     Indication: Uterine artery embolisation
     Dosage: GELFOAM, AVITENE, LARGE PARTICLES, AND NBCA GLUE MIXED WITH LIPIODOL
     Route: 013
  2. GELFOAM [Suspect]
     Active Substance: DEVICE\GELATIN
     Indication: Uterine artery embolisation
     Dosage: GELFOAM, AVITENE, LARGE PARTICLES, AND NBCA GLUE MIXED WITH LIPIODOL
     Route: 013
  3. COLLAGEN [Suspect]
     Active Substance: COLLAGEN
     Indication: Uterine artery embolisation
     Dosage: GELFOAM, AVITENE, LARGE PARTICLES, AND NBCA GLUE MIXED WITH LIPIODOL
     Route: 013
  4. ENBUCRILATE [Suspect]
     Active Substance: ENBUCRILATE
     Indication: Uterine artery embolisation
     Dosage: GELFOAM, AVITENE, LARGE PARTICLES, AND NBCA GLUE MIXED WITH LIPIODOL
     Route: 013

REACTIONS (4)
  - Pulmonary embolism [Recovered/Resolved]
  - Cor pulmonale acute [Recovered/Resolved]
  - Product use in unapproved indication [Recovered/Resolved]
  - Pelvic pain [Recovered/Resolved]
